FAERS Safety Report 25176341 (Version 3)
Quarter: 2025Q3

REPORT INFORMATION
  Report Type: Report from Study
  Country: US (occurrence: US)
  Receive Date: 20250409
  Receipt Date: 20250802
  Transmission Date: 20251020
  Serious: Yes (Other)
  Sender: ALEXION PHARMACEUTICALS
  Company Number: US-AstraZeneca-CH-00805148A

PATIENT
  Sex: Male

DRUGS (2)
  1. SOLIRIS [Suspect]
     Active Substance: ECULIZUMAB
     Indication: Neuromyelitis optica spectrum disorder
  2. DECADRON [Concomitant]
     Active Substance: DEXAMETHASONE
     Indication: Immune enhancement therapy
     Route: 065

REACTIONS (3)
  - Brain neoplasm benign [Unknown]
  - Headache [Unknown]
  - Vision blurred [Unknown]
